FAERS Safety Report 7237619-9 (Version None)
Quarter: 2011Q1

REPORT INFORMATION
  Report Type: 
  Country: None (occurrence: None)
  Receive Date: 20110121
  Receipt Date: 20110111
  Transmission Date: 20110831
  Serious: No
  Sender: FDA-Public Use
  Company Number: B0693562A

PATIENT
  Age: 10 Year

DRUGS (1)
  1. RELENZA [Suspect]
     Route: 055

REACTIONS (1)
  - OVERDOSE [None]
